FAERS Safety Report 18453495 (Version 2)
Quarter: 2020Q4

REPORT INFORMATION
  Report Type: Report from Study
  Country: IT (occurrence: IT)
  Receive Date: 20201102
  Receipt Date: 20201103
  Transmission Date: 20210114
  Serious: Yes (Other)
  Sender: FDA-Public Use
  Company Number: IT-JNJFOC-20201050919

PATIENT
  Age: 92 Year
  Sex: Male

DRUGS (4)
  1. DUROGESIC [Suspect]
     Active Substance: FENTANYL
     Indication: PRODUCT USED FOR UNKNOWN INDICATION
     Route: 062
     Dates: start: 20200731, end: 20200802
  2. DILATREND [Concomitant]
     Active Substance: CARVEDILOL
  3. MEDROL [Concomitant]
     Active Substance: METHYLPREDNISOLONE
  4. AVODART [Concomitant]
     Active Substance: DUTASTERIDE

REACTIONS (2)
  - Pyrexia [Recovering/Resolving]
  - Sopor [Recovering/Resolving]

NARRATIVE: CASE EVENT DATE: 20200802
